FAERS Safety Report 11913509 (Version 8)
Quarter: 2016Q3

REPORT INFORMATION
  Report Type: Report from Study
  Country: BR (occurrence: BR)
  Receive Date: 20160113
  Receipt Date: 20160909
  Transmission Date: 20161109
  Serious: Yes (Hospitalization, Other)
  Sender: FDA-Public Use
  Company Number: PHHY2015BR079128

PATIENT
  Age: 54 Year
  Sex: Female
  Weight: 47 kg

DRUGS (4)
  1. HYDREA [Concomitant]
     Active Substance: HYDROXYUREA
     Indication: SICKLE CELL ANAEMIA
     Dosage: 2 DF, QD
     Route: 048
     Dates: start: 2007
  2. FOLIC ACID. [Concomitant]
     Active Substance: FOLIC ACID
     Indication: SICKLE CELL ANAEMIA
     Dosage: 1 DF, FROM MONDAY TO FRIDAY
     Route: 065
  3. SIMVASTATIN. [Concomitant]
     Active Substance: SIMVASTATIN
     Indication: ARRHYTHMIA
     Dosage: 20 MG, QD
     Route: 048
     Dates: start: 201601
  4. EXJADE [Suspect]
     Active Substance: DEFERASIROX
     Indication: SICKLE CELL ANAEMIA
     Dosage: 20 MG/KG,(2 DF OF 500 MG WITH 1 DF OF 250 MG) QD
     Route: 048
     Dates: start: 2009

REACTIONS (22)
  - Hemiplegia [Recovering/Resolving]
  - Chest pain [Recovered/Resolved]
  - Atrial fibrillation [Unknown]
  - Chest pain [Recovered/Resolved]
  - Cardiac disorder [Recovering/Resolving]
  - Fatigue [Unknown]
  - Mental disorder [Recovering/Resolving]
  - Renal pain [Recovered/Resolved]
  - Blood disorder [Unknown]
  - Vein disorder [Unknown]
  - Headache [Recovered/Resolved]
  - Visual impairment [Recovering/Resolving]
  - Pneumonia [Recovered/Resolved]
  - Cardiac ventricular disorder [Recovering/Resolving]
  - Headache [Recovered/Resolved]
  - Balance disorder [Recovering/Resolving]
  - Blindness [Recovering/Resolving]
  - Hypokinesia [Recovering/Resolving]
  - Speech disorder [Recovered/Resolved]
  - Cerebrovascular accident [Recovering/Resolving]
  - Urinary tract infection [Recovering/Resolving]
  - Dizziness [Unknown]

NARRATIVE: CASE EVENT DATE: 201502
